FAERS Safety Report 11113138 (Version 3)
Quarter: 2015Q3

REPORT INFORMATION
  Report Type: Spontaneous
  Country: US (occurrence: US)
  Receive Date: 20150514
  Receipt Date: 20150806
  Transmission Date: 20151125
  Serious: No
  Sender: FDA-Public Use
  Company Number: US-ELI_LILLY_AND_COMPANY-US201505000272

PATIENT
  Sex: Male
  Weight: 59.86 kg

DRUGS (8)
  1. ROBAXIN [Concomitant]
     Active Substance: METHOCARBAMOL
  2. LYRICA [Concomitant]
     Active Substance: PREGABALIN
  3. OXYCODONE                          /00045603/ [Concomitant]
     Active Substance: OXYCODONE
  4. FORTEO [Suspect]
     Active Substance: TERIPARATIDE
     Indication: OSTEOPOROSIS
     Dosage: 20 UG, QD
     Route: 058
     Dates: start: 20150204, end: 20150429
  5. FORTEO [Suspect]
     Active Substance: TERIPARATIDE
     Dosage: 20 UG, QD
     Route: 058
     Dates: start: 201506
  6. ADVAIR HFA [Concomitant]
     Active Substance: FLUTICASONE PROPIONATE\SALMETEROL XINAFOATE
  7. VENTOLIN [Concomitant]
     Active Substance: ALBUTEROL SULFATE
  8. BUSPAN [Concomitant]

REACTIONS (1)
  - Gynaecomastia [Unknown]
